FAERS Safety Report 15005246 (Version 1)
Quarter: 2018Q2

REPORT INFORMATION
  Report Type: Spontaneous
  Country: US (occurrence: US)
  Receive Date: 20180613
  Receipt Date: 20180613
  Transmission Date: 20180711
  Serious: No
  Sender: FDA-Public Use
  Company Number: US-TARO-2017TAR01060

PATIENT
  Age: 38 Year
  Sex: Female
  Weight: 57.6 kg

DRUGS (3)
  1. FIORICET [Suspect]
     Active Substance: ACETAMINOPHEN\BUTALBITAL\CAFFEINE
     Indication: TRIGEMINAL NEURALGIA
     Dosage: UNK
     Dates: start: 20171204
  2. NORTRIPTYLINE HCL CAPSULES 10 MG [Suspect]
     Active Substance: NORTRIPTYLINE HYDROCHLORIDE
     Indication: TRIGEMINAL NEURALGIA
     Dosage: 20 MG, 3X/DAY
     Route: 048
     Dates: start: 20171204
  3. SOMA [Suspect]
     Active Substance: CARISOPRODOL
     Indication: TRIGEMINAL NEURALGIA
     Dosage: UNK
     Dates: start: 20171204

REACTIONS (3)
  - Increased upper airway secretion [Recovered/Resolved]
  - Pharyngeal erythema [Recovered/Resolved]
  - Off label use [Not Recovered/Not Resolved]

NARRATIVE: CASE EVENT DATE: 201712
